FAERS Safety Report 11473080 (Version 2)
Quarter: 2016Q4

REPORT INFORMATION
  Report Type: Spontaneous
  Country: US (occurrence: US)
  Receive Date: 20150908
  Receipt Date: 20161123
  Transmission Date: 20170206
  Serious: Yes (Other)
  Sender: FDA-Public Use
  Company Number: US-JAZZ-2014-US-010357

PATIENT
  Age: 69 Year
  Sex: Female
  Weight: 65.31 kg

DRUGS (6)
  1. AMBIEN [Concomitant]
     Active Substance: ZOLPIDEM TARTRATE
     Indication: INSOMNIA
     Dosage: 20 MG, QD
     Route: 048
  2. ESTRADIOL. [Concomitant]
     Active Substance: ESTRADIOL
     Indication: HORMONE REPLACEMENT THERAPY
     Dosage: UNK, QD
     Route: 048
  3. XYREM [Suspect]
     Active Substance: SODIUM OXYBATE
     Dosage: 3 G, BID
     Route: 048
     Dates: start: 2014, end: 201409
  4. XYREM [Suspect]
     Active Substance: SODIUM OXYBATE
     Indication: INSOMNIA
     Dosage: 3 G, BID
     Route: 048
     Dates: start: 201408, end: 2014
  5. PROGESTERONE. [Concomitant]
     Active Substance: PROGESTERONE
     Indication: HORMONE REPLACEMENT THERAPY
     Dosage: UNK, QD
     Route: 048
  6. CLONIDINE. [Concomitant]
     Active Substance: CLONIDINE
     Indication: HYPERTENSION
     Dosage: UNK, QD
     Route: 048

REACTIONS (16)
  - Tooth discolouration [Unknown]
  - Arthralgia [Unknown]
  - Blood pressure increased [Unknown]
  - Intentional overdose [Unknown]
  - Dyskinesia [Not Recovered/Not Resolved]
  - Gingival swelling [Unknown]
  - Dysgeusia [Unknown]
  - Anxiety [Unknown]
  - Gingival recession [Unknown]
  - Decreased appetite [Not Recovered/Not Resolved]
  - Sleep disorder [Unknown]
  - Diarrhoea [Unknown]
  - Vertigo [Not Recovered/Not Resolved]
  - Gingival discolouration [Unknown]
  - Gingival bleeding [Unknown]
  - Oral discomfort [Unknown]

NARRATIVE: CASE EVENT DATE: 201408
